FAERS Safety Report 5557642-X (Version None)
Quarter: 2007Q4

REPORT INFORMATION
  Report Type: 
  Country: None (occurrence: None)
  Receive Date: 20071214
  Receipt Date: 20071205
  Transmission Date: 20080405
  Serious: Yes (Hospitalization)
  Sender: FDA-Public Use
  Company Number: B0499561A

PATIENT
  Age: 84 Year
  Sex: Female

DRUGS (7)
  1. LAMICTAL [Suspect]
     Route: 048
     Dates: start: 20070929, end: 20071017
  2. LAMOTRIGINE [Suspect]
     Route: 048
     Dates: start: 20071017, end: 20071031
  3. FLECAINIDE ACETATE [Concomitant]
     Dosage: 150MG IN THE MORNING
     Route: 048
     Dates: start: 20010101
  4. ARICEPT [Concomitant]
     Dosage: 10MG AT NIGHT
     Route: 048
     Dates: start: 20020301
  5. KARDEGIC [Concomitant]
     Dosage: 75MG PER DAY
     Route: 048
     Dates: start: 20071001
  6. KENACORT [Concomitant]
     Route: 050
  7. PHOTOTHERAPY [Concomitant]

REACTIONS (6)
  - AMNESIA [None]
  - FALL [None]
  - PRURIGO [None]
  - RASH [None]
  - RHABDOMYOLYSIS [None]
  - URTICARIA [None]
